FAERS Safety Report 12499813 (Version 5)
Quarter: 2016Q4

REPORT INFORMATION
  Report Type: Spontaneous
  Country: US (occurrence: US)
  Receive Date: 20160627
  Receipt Date: 20161124
  Transmission Date: 20170207
  Serious: Yes (Hospitalization, Other)
  Sender: FDA-Public Use
  Company Number: US-BRISTOL-MYERS SQUIBB COMPANY-BMS-2016-049891

PATIENT
  Age: 63 Year
  Sex: Female

DRUGS (5)
  1. IBUPROFEN. [Concomitant]
     Active Substance: IBUPROFEN
     Indication: PRODUCT USED FOR UNKNOWN INDICATION
     Route: 065
  2. TYLENOL [Concomitant]
     Active Substance: ACETAMINOPHEN
     Indication: PRODUCT USED FOR UNKNOWN INDICATION
     Route: 065
  3. GABAPENTIN. [Concomitant]
     Active Substance: GABAPENTIN
     Indication: PRODUCT USED FOR UNKNOWN INDICATION
     Route: 065
  4. SPRYCEL [Suspect]
     Active Substance: DASATINIB
     Indication: CHRONIC LYMPHOCYTIC LEUKAEMIA
     Dosage: 1 TAB, QD
     Route: 048
     Dates: start: 20160606, end: 20160726
  5. PROTONIX                           /00661201/ [Concomitant]
     Active Substance: OMEPRAZOLE
     Indication: PRODUCT USED FOR UNKNOWN INDICATION
     Route: 065

REACTIONS (9)
  - Swelling [Unknown]
  - Nausea [Recovered/Resolved]
  - Product use issue [Unknown]
  - Pneumonia [Recovering/Resolving]
  - Tremor [Unknown]
  - Pain in extremity [Unknown]
  - Sleep disorder [Unknown]
  - Dizziness [Unknown]
  - Fall [Unknown]

NARRATIVE: CASE EVENT DATE: 20160606
